FAERS Safety Report 7299581-2 (Version None)
Quarter: 2011Q1

REPORT INFORMATION
  Report Type: 
  Country: None (occurrence: None)
  Receive Date: 20110208
  Receipt Date: 20110125
  Transmission Date: 20110831
  Serious: Yes (Other)
  Sender: FDA-Public Use
  Company Number: 2009-1203

PATIENT
  Age: 13 Year
  Sex: Female
  Weight: 30.4 kg

DRUGS (5)
  1. FOCALIN XR (INCRELEX 10MG/ML) (DEXMETHYLPHENIDATE HYDROCHLORIDE) [Concomitant]
  2. BUSPAR (INCRELEX 10MG/ML) (BUSPIRONE HYDROCHLORIDE) [Concomitant]
  3. INCRELEX [Suspect]
     Indication: GROWTH RETARDATION
     Dosage: 80 UG/KG (40 UG/KG,2 IN 1 D), SUBCUTANEOUS; 160 UG/KG (80 UG/KG,2 IN 1 D), SUBCUTANEOUS; 240 UG/KG
     Route: 058
     Dates: start: 20060627, end: 20060711
  4. INCRELEX [Suspect]
     Indication: GROWTH RETARDATION
     Dosage: 80 UG/KG (40 UG/KG,2 IN 1 D), SUBCUTANEOUS; 160 UG/KG (80 UG/KG,2 IN 1 D), SUBCUTANEOUS; 240 UG/KG
     Route: 058
     Dates: start: 20060612, end: 20060626
  5. INCRELEX [Suspect]
     Indication: GROWTH RETARDATION
     Dosage: 80 UG/KG (40 UG/KG,2 IN 1 D), SUBCUTANEOUS; 160 UG/KG (80 UG/KG,2 IN 1 D), SUBCUTANEOUS; 240 UG/KG
     Route: 058
     Dates: start: 20060712

REACTIONS (2)
  - BENIGN INTRACRANIAL HYPERTENSION [None]
  - OFF LABEL USE [None]
